FAERS Safety Report 5248495-8 (Version None)
Quarter: 2007Q1

REPORT INFORMATION
  Report Type: 
  Country: None (occurrence: None)
  Receive Date: 20070227
  Receipt Date: 20070216
  Transmission Date: 20070707
  Serious: Yes (Other)
  Sender: FDA-Public Use
  Company Number: US-PFIZER INC-2006145697

PATIENT

DRUGS (2)
  1. LYRICA [Suspect]
     Indication: NEURALGIA
  2. LYRICA [Suspect]
     Indication: PARAPLEGIA

REACTIONS (2)
  - DEPRESSION [None]
  - SUICIDAL IDEATION [None]
